FAERS Safety Report 7865839-9 (Version None)
Quarter: 2011Q4

REPORT INFORMATION
  Report Type: 
  Country: None (occurrence: None)
  Receive Date: 20111028
  Receipt Date: 20110307
  Transmission Date: 20120403
  Serious: No
  Sender: FDA-Public Use
  Company Number: US-GLAXOSMITHKLINE-A0916978A

PATIENT
  Age: 44 Year
  Sex: Female

DRUGS (4)
  1. ADVAIR DISKUS 100/50 [Suspect]
     Indication: ASTHMA
     Dosage: 1PUFF TWICE PER DAY
     Route: 055
     Dates: start: 20110302, end: 20110302
  2. ALBUTEROL [Concomitant]
  3. SINGULAIR [Concomitant]
  4. QVAR 40 [Concomitant]

REACTIONS (4)
  - HYPERSENSITIVITY [None]
  - DYSPHAGIA [None]
  - SWELLING [None]
  - ERYTHEMA [None]
